FAERS Safety Report 6858349-9 (Version None)
Quarter: 2010Q3

REPORT INFORMATION
  Report Type: 
  Country: None (occurrence: None)
  Receive Date: 20100719
  Receipt Date: 20080730
  Transmission Date: 20110219
  Serious: No
  Sender: FDA-Public Use
  Company Number: US-PFIZER INC-2008010937

PATIENT
  Sex: Female
  Weight: 79.4 kg

DRUGS (12)
  1. CHANTIX [Suspect]
     Indication: SMOKING CESSATION THERAPY
     Route: 048
     Dates: start: 20070502, end: 20070626
  2. MORPHINE [Suspect]
  3. HYDROCODONE [Suspect]
  4. COMBIVENT [Concomitant]
  5. ALBUTEROL [Concomitant]
  6. PHENYTOIN [Concomitant]
  7. TRIAMCINOLONE [Concomitant]
  8. HALOPERIDOL [Concomitant]
  9. BENAZEPRIL HYDROCHLORIDE [Concomitant]
  10. CLONIDINE [Concomitant]
  11. IBUPROFEN [Concomitant]
  12. BUPROPION HYDROCHLORIDE [Concomitant]

REACTIONS (1)
  - NO ADVERSE EVENT [None]
